FAERS Safety Report 7035195-7 (Version None)
Quarter: 2010Q4

REPORT INFORMATION
  Report Type: 
  Country: None (occurrence: None)
  Receive Date: 20101007
  Receipt Date: 20101007
  Transmission Date: 20110411
  Serious: Yes (Death)
  Sender: FDA-Public Use
  Company Number: None

PATIENT
  Age: 48 Year
  Sex: Male
  Weight: 81.6475 kg

DRUGS (2)
  1. CYMBALTA [Suspect]
     Indication: ANGINA PECTORIS
     Dosage: 1 CAPSULE DAILY 047
     Dates: start: 20100614
  2. CYMBALTA [Suspect]
     Indication: ANXIETY
     Dosage: 1 CAPSULE DAILY 047
     Dates: start: 20100614

REACTIONS (1)
  - COMPLETED SUICIDE [None]
